FAERS Safety Report 8510959-9 (Version None)
Quarter: 2012Q3

REPORT INFORMATION
  Report Type: 
  Country: None (occurrence: None)
  Receive Date: 20120716
  Receipt Date: 20120705
  Transmission Date: 20120928
  Serious: Yes (Hospitalization)
  Sender: FDA-Public Use
  Company Number: JP-JNJFOC-20120409359

PATIENT
  Sex: Male
  Weight: 62 kg

DRUGS (10)
  1. ENALAPRIL MALEATE [Concomitant]
     Indication: OFF LABEL USE
     Route: 048
  2. RABEPRAZOLE SODIUM [Concomitant]
     Indication: OFF LABEL USE
     Route: 048
  3. ALLEGRA [Concomitant]
     Indication: PSORIASIS
     Route: 048
  4. D-ALFA [Concomitant]
     Indication: PROPHYLAXIS
     Route: 048
  5. STELARA [Suspect]
     Indication: PSORIASIS
     Route: 058
     Dates: start: 20110829
  6. AMLODIPINE [Concomitant]
     Indication: PRODUCT USED FOR UNKNOWN INDICATION
     Route: 048
  7. KINDAVATE [Concomitant]
     Indication: PSORIASIS
     Route: 061
  8. NERISONA [Concomitant]
     Indication: PSORIASIS
     Route: 061
  9. PREDNISOLONE [Suspect]
     Indication: PRODUCT USED FOR UNKNOWN INDICATION
  10. ANTEBATE [Concomitant]
     Indication: PSORIASIS
     Route: 061

REACTIONS (1)
  - PNEUMONIA [None]
